FAERS Safety Report 4835647-1 (Version None)
Quarter: 2005Q4

REPORT INFORMATION
  Report Type: 
  Country: None (occurrence: None)
  Receive Date: 20051121
  Receipt Date: 20051108
  Transmission Date: 20060501
  Serious: Yes (Other)
  Sender: FDA-Public Use
  Company Number: 2005151967

PATIENT
  Age: 4 Year
  Sex: Female

DRUGS (1)
  1. SOMATROPIN (SOMATROPIN) [Suspect]
     Indication: CHONDRODYSTROPHY
     Dosage: 0.356 MG/KG (0.35 MG/KG, WEEKLY),

REACTIONS (5)
  - ADENOIDAL HYPERTROPHY [None]
  - OBSTRUCTIVE AIRWAYS DISORDER [None]
  - OTITIS MEDIA [None]
  - PHARYNGEAL HYPERTROPHY [None]
  - SLEEP APNOEA SYNDROME [None]
